FAERS Safety Report 19854881 (Version 1)
Quarter: 2021Q3

REPORT INFORMATION
  Report Type: Spontaneous
  Country: US (occurrence: US)
  Receive Date: 20210918
  Receipt Date: 20210918
  Transmission Date: 20211014
  Serious: Yes (Hospitalization)
  Sender: FDA-Public Use
  Company Number: None

PATIENT
  Age: 19 Year
  Sex: Female
  Weight: 58.5 kg

DRUGS (5)
  1. VITAMIN B12 [Concomitant]
     Active Substance: CYANOCOBALAMIN
  2. LANTUS [Concomitant]
     Active Substance: INSULIN GLARGINE
  3. NOVOLOG [Concomitant]
     Active Substance: INSULIN ASPART
  4. IBUPROFEN. [Concomitant]
     Active Substance: IBUPROFEN
  5. BALCOLTRA [Suspect]
     Active Substance: ETHINYL ESTRADIOL\LEVONORGESTREL
     Indication: MENSTRUATION IRREGULAR
     Dosage: ?          QUANTITY:1 TABLET(S);?
     Route: 048
     Dates: start: 20210712, end: 20210912

REACTIONS (11)
  - Dizziness [None]
  - Head discomfort [None]
  - Sinus pain [None]
  - Seizure [None]
  - Tinnitus [None]
  - Hallucination, auditory [None]
  - Impaired work ability [None]
  - Amnesia [None]
  - Blindness [None]
  - Migraine [None]
  - Photopsia [None]

NARRATIVE: CASE EVENT DATE: 20210912
